FAERS Safety Report 7905792-2 (Version None)
Quarter: 2011Q4

REPORT INFORMATION
  Report Type: 
  Country: None (occurrence: None)
  Receive Date: 20111110
  Receipt Date: 20111031
  Transmission Date: 20120403
  Serious: Yes (Other)
  Sender: FDA-Public Use
  Company Number: US-JNJFOC-20111101980

PATIENT
  Sex: Female
  Weight: 65.77 kg

DRUGS (1)
  1. NUCYNTA [Suspect]
     Indication: PROCEDURAL PAIN
     Dosage: 3 TIMES DAILY AS NEEDED
     Route: 048
     Dates: start: 20110801

REACTIONS (3)
  - RIB FRACTURE [None]
  - NASOPHARYNGITIS [None]
  - COUGH [None]
